FAERS Safety Report 15616479 (Version 1)
Quarter: 2018Q4

REPORT INFORMATION
  Report Type: Report from Study
  Country: CA (occurrence: CA)
  Receive Date: 20181114
  Receipt Date: 20181114
  Transmission Date: 20190205
  Serious: Yes (Other)
  Sender: FDA-Public Use
  Company Number: CA-JNJFOC-20181101193

PATIENT
  Sex: Female

DRUGS (4)
  1. REMICADE [Suspect]
     Active Substance: INFLIXIMAB
     Indication: COLITIS ULCERATIVE
     Route: 042
  2. CEFTRIAXONE. [Suspect]
     Active Substance: CEFTRIAXONE
     Indication: POST PROCEDURAL INFECTION
     Dosage: DURING CONSULTATION
     Route: 065
     Dates: start: 201810
  3. METRONIDAZOLE. [Suspect]
     Active Substance: METRONIDAZOLE
     Indication: POST PROCEDURAL INFECTION
     Route: 065
     Dates: start: 20181010
  4. APO DOXY [Suspect]
     Active Substance: DOXYCYCLINE HYDROCHLORIDE
     Indication: POST PROCEDURAL INFECTION
     Route: 065
     Dates: start: 20181010

REACTIONS (5)
  - Diarrhoea [Not Recovered/Not Resolved]
  - Vomiting [Unknown]
  - Abdominal pain upper [Not Recovered/Not Resolved]
  - Post procedural infection [Recovered/Resolved]
  - Uterine cancer [Unknown]

NARRATIVE: CASE EVENT DATE: 2018
